FAERS Safety Report 19456842 (Version 2)
Quarter: 2021Q2

REPORT INFORMATION
  Report Type: Report from Study
  Country: JP (occurrence: JP)
  Receive Date: 20210624
  Receipt Date: 20210624
  Transmission Date: 20210717
  Serious: Yes (Other)
  Sender: FDA-Public Use
  Company Number: JP-RECORDATI RARE DISEASE INC.-2021002335

PATIENT
  Age: 3 Day
  Sex: Male
  Weight: 1.07 kg

DRUGS (15)
  1. HEPARIN SODIUM. [Concomitant]
     Active Substance: HEPARIN SODIUM
     Indication: THROMBOSIS PROPHYLAXIS
     Dosage: UNK
     Route: 042
     Dates: start: 20191219, end: 20200104
  2. CALCICOL [Concomitant]
     Active Substance: CALCIUM GLUCONATE
     Indication: HYPOCALCAEMIA
     Dosage: UNK
     Route: 042
     Dates: start: 20191219, end: 20200103
  3. KAKODIN [Concomitant]
     Active Substance: DOPAMINE HYDROCHLORIDE
     Indication: HYPOTENSION
     Dosage: UNK
     Route: 042
     Dates: start: 20191219, end: 20191221
  4. OTSUKA NORMAL SALINE [Concomitant]
     Indication: PARENTERAL NUTRITION
     Dosage: UNK
     Route: 042
     Dates: start: 20191220, end: 20200104
  5. GLUCOSE INJECTION MP [Concomitant]
     Indication: MEDICATION DILUTION
     Dosage: UNK
     Route: 042
     Dates: start: 20191219, end: 20200104
  6. DOBUTAMINE [Concomitant]
     Active Substance: DOBUTAMINE HYDROCHLORIDE
     Indication: HYPOTENSION
     Dosage: UNK
     Route: 042
     Dates: start: 20191219, end: 20191226
  7. NEOPROFEN [Suspect]
     Active Substance: IBUPROFEN LYSINE
     Dosage: 5 MILLIGRAM
     Route: 042
     Dates: start: 20191221, end: 20191221
  8. ELEJECT [Concomitant]
     Indication: PARENTERAL NUTRITION
     Dosage: UNK
     Route: 042
     Dates: start: 20191220, end: 20200103
  9. PLEAMIN P [Concomitant]
     Indication: PARENTERAL NUTRITION
     Dosage: UNK
     Route: 042
     Dates: start: 20191220, end: 20200103
  10. VITAJECT [CYANOCOBALAMIN;PYRIDOXINE HYDROCHLORIDE;THIAMINE HYDROCHLORI [Concomitant]
     Indication: PARENTERAL NUTRITION
     Dosage: UNK
     Route: 042
     Dates: start: 20191220, end: 20200103
  11. GLUCOSE INJECTION MP [Concomitant]
     Indication: PARENTERAL NUTRITION
  12. NEOPROFEN [Suspect]
     Active Substance: IBUPROFEN LYSINE
     Indication: PATENT DUCTUS ARTERIOSUS
     Dosage: 11 MILLIGRAM
     Route: 042
     Dates: start: 20191220, end: 20191220
  13. GLUCOSE 50% BRAUN PHARMA [Concomitant]
     Indication: PARENTERAL NUTRITION
     Dosage: UNK
     Route: 042
     Dates: start: 20191220, end: 20200103
  14. GLUCOSE 20% BRAUN [Concomitant]
     Indication: MEDICATION DILUTION
     Dosage: UNK
     Route: 042
     Dates: start: 20191220, end: 20191220
  15. HUMULIN R [Concomitant]
     Active Substance: INSULIN HUMAN
     Indication: HYPERKALAEMIA
     Dosage: UNK
     Route: 042
     Dates: start: 20191220, end: 20191220

REACTIONS (1)
  - Metabolic acidosis [Recovered/Resolved]

NARRATIVE: CASE EVENT DATE: 20191222
